FAERS Safety Report 22057733 (Version 1)
Quarter: 2023Q1

REPORT INFORMATION
  Report Type: Spontaneous
  Country: DE (occurrence: DE)
  Receive Date: 20230303
  Receipt Date: 20230303
  Transmission Date: 20230417
  Serious: Yes (Other)
  Sender: FDA-Public Use
  Company Number: None

PATIENT
  Sex: Male

DRUGS (1)
  1. MIRTAZAPINE [Suspect]
     Active Substance: MIRTAZAPINE
     Indication: Product used for unknown indication
     Route: 065

REACTIONS (8)
  - Confusional state [Unknown]
  - Disorientation [Unknown]
  - Dysphagia [Unknown]
  - Adverse drug reaction [Unknown]
  - Social avoidant behaviour [Unknown]
  - Speech disorder [Unknown]
  - Communication disorder [Unknown]
  - Eating disorder [Unknown]
